FAERS Safety Report 11109466 (Version 1)
Quarter: 2015Q2

REPORT INFORMATION
  Report Type: Report from Study
  Country: FR (occurrence: FR)
  Receive Date: 20150513
  Receipt Date: 20150513
  Transmission Date: 20150821
  Serious: Yes (Hospitalization, Other)
  Sender: FDA-Public Use
  Company Number: FR-GLAXOSMITHKLINE-FR2015GSK063687

PATIENT
  Age: 52 Year
  Sex: Male

DRUGS (5)
  1. PLAVIX [Concomitant]
     Active Substance: CLOPIDOGREL BISULFATE
  2. OMEGA-3-ACID ETHYL ESTERS. [Suspect]
     Active Substance: OMEGA-3-ACID ETHYL ESTERS
     Indication: ISCHAEMIC HEART DISEASE PROPHYLAXIS
     Dosage: UNK
     Dates: start: 20070502, end: 20100914
  3. KARDEGIC [Concomitant]
     Active Substance: ASPIRIN LYSINE
  4. DETENSIEL [Suspect]
     Active Substance: BISOPROLOL FUMARATE
  5. VASTEN [Suspect]
     Active Substance: PRAVASTATIN SODIUM

REACTIONS (2)
  - Gastrointestinal haemorrhage [Unknown]
  - Colonoscopy [Unknown]

NARRATIVE: CASE EVENT DATE: 200709
